FAERS Safety Report 7600255-6 (Version None)
Quarter: 2011Q3

REPORT INFORMATION
  Report Type: 
  Country: None (occurrence: None)
  Receive Date: 20110711
  Receipt Date: 20110704
  Transmission Date: 20111222
  Serious: Yes (Other)
  Sender: FDA-Public Use
  Company Number: JP-JNJFOC-20110611675

PATIENT
  Sex: Male
  Weight: 25 kg

DRUGS (5)
  1. ONON [Concomitant]
     Indication: ASTHMA
     Route: 048
     Dates: start: 20100615
  2. ONON [Concomitant]
     Route: 048
     Dates: start: 20091126, end: 20100418
  3. THEO-DUR [Concomitant]
     Indication: ASTHMA
     Route: 048
     Dates: start: 20091126, end: 20100118
  4. THEO-DUR [Concomitant]
     Route: 048
     Dates: start: 20100304, end: 20100418
  5. CONCERTA [Suspect]
     Indication: ATTENTION DEFICIT/HYPERACTIVITY DISORDER
     Route: 048
     Dates: start: 20090514

REACTIONS (1)
  - ASTHMA [None]
